FAERS Safety Report 20283228 (Version 1)
Quarter: 2022Q1

REPORT INFORMATION
  Report Type: Spontaneous
  Country: BE (occurrence: BE)
  Receive Date: 20220103
  Receipt Date: 20220103
  Transmission Date: 20220423
  Serious: Yes (Hospitalization, Other)
  Sender: FDA-Public Use
  Company Number: BE-TEVA-2021-BE-1931959

PATIENT
  Age: 26 Year
  Sex: Female

DRUGS (3)
  1. AJOVY [Suspect]
     Active Substance: FREMANEZUMAB-VFRM
     Indication: Migraine
     Dosage: STRENGTH:225 MG/1.5 ML
     Route: 058
     Dates: start: 20200624, end: 202011
  2. TOPIRAMATE [Suspect]
     Active Substance: TOPIRAMATE
     Indication: Migraine
     Dosage: 100 MILLIGRAM DAILY;
     Route: 048
     Dates: start: 202006, end: 202011
  3. DEPAKINE (sodium valproate) [Concomitant]
     Dates: end: 20200925

REACTIONS (5)
  - Depression [Unknown]
  - Panic attack [Unknown]
  - Sleep disorder [Unknown]
  - Status migrainosus [Recovered/Resolved]
  - Headache [Recovered/Resolved]

NARRATIVE: CASE EVENT DATE: 20200901
